FAERS Safety Report 5529084-4 (Version None)
Quarter: 2007Q4

REPORT INFORMATION
  Report Type: 
  Country: None (occurrence: None)
  Receive Date: 20071129
  Receipt Date: 20061113
  Transmission Date: 20080405
  Serious: No
  Sender: FDA-Public Use
  Company Number: A0627262A

PATIENT
  Age: 59 Year
  Sex: Female

DRUGS (1)
  1. WELLBUTRIN SR [Suspect]
     Indication: ANXIETY
     Dosage: 150MG VARIABLE DOSE
     Route: 048
     Dates: start: 20061017

REACTIONS (2)
  - PRURITUS [None]
  - THERAPEUTIC RESPONSE UNEXPECTED [None]
